FAERS Safety Report 7588507-X (Version None)
Quarter: 2011Q3

REPORT INFORMATION
  Report Type: 
  Country: None (occurrence: None)
  Receive Date: 20110705
  Receipt Date: 20110627
  Transmission Date: 20111222
  Serious: Yes (Hospitalization)
  Sender: FDA-Public Use
  Company Number: GB-PFIZER INC-2011143256

PATIENT
  Age: 42 Year
  Sex: Female

DRUGS (7)
  1. DEPO-PROVERA [Suspect]
     Indication: CONTRACEPTION
     Dosage: 150 MG, UNK
     Route: 030
     Dates: start: 20090101, end: 20110603
  2. SIMVASTATIN [Concomitant]
     Dosage: 40 MG, 1X/DAY
     Route: 048
     Dates: start: 20100527
  3. LIRAGLUTIDE (NN2211) [Concomitant]
     Dosage: 12 IU, 1X/DAY
     Route: 058
     Dates: start: 20101119
  4. OMEPRAZOLE [Concomitant]
     Dosage: 20 MG, 1X/DAY
     Route: 048
     Dates: start: 20060323
  5. BOSENTAN [Concomitant]
     Indication: PULMONARY HYPERTENSION
     Dosage: 125 MG, 1X/DAY
     Route: 048
     Dates: start: 20110401
  6. WARFARIN [Concomitant]
     Dosage: UNK
     Dates: start: 20110421
  7. METFORMIN [Concomitant]
     Dosage: 1 G, 2X/DAY
     Route: 048
     Dates: start: 20100430

REACTIONS (7)
  - VOMITING [None]
  - URTICARIA [None]
  - ABDOMINAL PAIN [None]
  - HYPERSENSITIVITY [None]
  - DIZZINESS [None]
  - HYPOTENSION [None]
  - PRURITUS [None]
